FAERS Safety Report 14772528 (Version 2)
Quarter: 2018Q2

REPORT INFORMATION
  Report Type: Report from Study
  Country: JP (occurrence: JP)
  Receive Date: 20180418
  Receipt Date: 20180421
  Transmission Date: 20180711
  Serious: Yes (Hospitalization)
  Sender: FDA-Public Use
  Company Number: JP-ROCHE-2102037

PATIENT
  Age: 62 Year
  Sex: Female
  Weight: 41.7 kg

DRUGS (8)
  1. SENNOSIDE [Concomitant]
     Active Substance: SENNOSIDES
     Indication: CONSTIPATION
     Dosage: FOR TON
     Route: 048
     Dates: start: 20160622, end: 20180328
  2. HIRUDOID (JAPAN) [Concomitant]
     Indication: DRY SKIN
     Dosage: FOR PROPER QUANTITY/TON
     Route: 061
     Dates: start: 2017, end: 20180328
  3. ATEZOLIZUMAB. [Suspect]
     Active Substance: ATEZOLIZUMAB
     Indication: NEOPLASM
     Route: 042
     Dates: start: 20180314
  4. COBIMETINIB. [Suspect]
     Active Substance: COBIMETINIB
     Indication: NEOPLASM
     Dosage: ADMINISTERING FOR 21 DAYS AND (YASUKUSURI) FOR SEVEN DAYS
     Route: 048
     Dates: start: 20180314, end: 20180322
  5. COBIMETINIB. [Suspect]
     Active Substance: COBIMETINIB
     Dosage: ADMINISTERING FOR 21 DAYS AND [YASUKUSURI] FOR SEVEN DAYS
     Route: 048
     Dates: start: 20180324, end: 20180328
  6. NAIXAN [Concomitant]
     Active Substance: NAPROXEN SODIUM
     Indication: PYREXIA
     Route: 048
     Dates: start: 20180323, end: 20180328
  7. CALONAL [Concomitant]
     Active Substance: ACETAMINOPHEN
     Indication: PYREXIA
     Dosage: FOR TON
     Route: 048
     Dates: start: 20180322, end: 20180328
  8. RABEPRAZOLE NA [Concomitant]
     Active Substance: RABEPRAZOLE SODIUM
     Indication: GASTRITIS PROPHYLAXIS
     Route: 048
     Dates: start: 20180323, end: 20180328

REACTIONS (1)
  - Altered state of consciousness [Recovering/Resolving]

NARRATIVE: CASE EVENT DATE: 20180328
